FAERS Safety Report 17270486 (Version 2)
Quarter: 2020Q1

REPORT INFORMATION
  Report Type: Report from Study
  Country: US (occurrence: US)
  Receive Date: 20200114
  Receipt Date: 20200129
  Transmission Date: 20200409
  Serious: Yes (Hospitalization)
  Sender: FDA-Public Use
  Company Number: US-TAIHO ONCOLOGY  INC-EU-2020-00079

PATIENT
  Age: 56 Year
  Sex: Female

DRUGS (4)
  1. LONSURF [Suspect]
     Active Substance: TIPIRACIL HYDROCHLORIDE\TRIFLURIDINE
     Indication: COLON CANCER
     Dosage: CURRENT CYCLE UNKNOWN
     Route: 048
     Dates: start: 20191228
  2. XARELTO [Concomitant]
     Active Substance: RIVAROXABAN
     Dates: start: 20191227
  3. MULTI VITAMIN [Concomitant]
     Active Substance: VITAMINS
     Dates: start: 20191227
  4. GABAPENTIN. [Concomitant]
     Active Substance: GABAPENTIN
     Dates: start: 20191227

REACTIONS (6)
  - Feeding disorder [Not Recovered/Not Resolved]
  - Blood electrolytes decreased [Unknown]
  - Pneumonia [Not Recovered/Not Resolved]
  - Product dose omission [Unknown]
  - Hypotension [Not Recovered/Not Resolved]
  - Nausea [Not Recovered/Not Resolved]

NARRATIVE: CASE EVENT DATE: 20200106
